FAERS Safety Report 6040862-8 (Version None)
Quarter: 2009Q1

REPORT INFORMATION
  Report Type: 
  Country: None (occurrence: None)
  Receive Date: 20090116
  Receipt Date: 20080609
  Transmission Date: 20090719
  Serious: No
  Sender: FDA-Public Use
  Company Number: US-BRISTOL-MYERS SQUIBB COMPANY-14226278

PATIENT
  Age: 10 Year
  Sex: Male
  Weight: 34 kg

DRUGS (1)
  1. ABILIFY [Suspect]
     Dosage: DOSE WAS GRADUALLY INCREASED FROM 10MG

REACTIONS (1)
  - DRUG INEFFECTIVE [None]
